FAERS Safety Report 15128413 (Version 2)
Quarter: 2018Q4

REPORT INFORMATION
  Report Type: Report from Study
  Country: FR (occurrence: FR)
  Receive Date: 20180711
  Receipt Date: 20181012
  Transmission Date: 20190204
  Serious: Yes (Other)
  Sender: FDA-Public Use
  Company Number: FR-ROCHE-2148717

PATIENT
  Age: 63 Year
  Sex: Female

DRUGS (10)
  1. XYZALL [Concomitant]
     Active Substance: LEVOCETIRIZINE DIHYDROCHLORIDE
  2. ALPRAZOLAM. [Concomitant]
     Active Substance: ALPRAZOLAM
  3. ATEZOLIZUMAB. [Suspect]
     Active Substance: ATEZOLIZUMAB
     Indication: MALIGNANT PERITONEAL NEOPLASM
     Dosage: ON 22/FEB/2018, SHE RECEIVED MOST RECENT DOSE PRIOR TO EVENT
     Route: 042
     Dates: start: 20171109
  4. TIORFAN [Concomitant]
     Active Substance: RACECADOTRIL
  5. BEVACIZUMAB. [Suspect]
     Active Substance: BEVACIZUMAB
     Route: 042
     Dates: start: 20180517
  6. DAFALGAN [Concomitant]
     Active Substance: ACETAMINOPHEN
  7. PACLITAXEL. [Suspect]
     Active Substance: PACLITAXEL
     Indication: MALIGNANT PERITONEAL NEOPLASM
     Dosage: ON 22/FEB/2018, SHE RECEIVED MOST RECENT DOSE PRIOR TO EVENT
     Route: 042
     Dates: start: 20171109, end: 20180222
  8. BEVACIZUMAB. [Suspect]
     Active Substance: BEVACIZUMAB
     Indication: MALIGNANT PERITONEAL NEOPLASM
     Dosage: ON 22/FEB/2018, SHE RECEIVED MOST RECENT DOSE PRIOR TO EVENT
     Route: 042
     Dates: start: 20171109, end: 20180315
  9. BEVACIZUMAB. [Suspect]
     Active Substance: BEVACIZUMAB
     Route: 042
     Dates: start: 20180405, end: 20180426
  10. CARBOPLATIN. [Suspect]
     Active Substance: CARBOPLATIN
     Indication: MALIGNANT PERITONEAL NEOPLASM
     Dosage: ON 22/FEB/2018, SHE RECEIVED MOST RECENT DOSE PRIOR TO EVENT
     Route: 042
     Dates: start: 20171109, end: 20180222

REACTIONS (1)
  - Hypertension [Recovered/Resolved]

NARRATIVE: CASE EVENT DATE: 20180315
